FAERS Safety Report 5463276-8 (Version None)
Quarter: 2007Q3

REPORT INFORMATION
  Report Type: 
  Country: None (occurrence: None)
  Receive Date: 20070920
  Receipt Date: 20070919
  Transmission Date: 20080115
  Serious: Yes (Hospitalization)
  Sender: FDA-Public Use
  Company Number: DE-BRISTOL-MYERS SQUIBB COMPANY-13914098

PATIENT
  Sex: Female

DRUGS (1)
  1. KARVEA [Suspect]

REACTIONS (1)
  - HYPONATRAEMIA [None]
